FAERS Safety Report 4674908-6 (Version None)
Quarter: 2005Q2

REPORT INFORMATION
  Report Type: 
  Country: None (occurrence: None)
  Receive Date: 20050518
  Receipt Date: 20050504
  Transmission Date: 20051028
  Serious: Yes (Hospitalization, Other)
  Sender: FDA-Public Use
  Company Number: 200510177BCA

PATIENT
  Age: 63 Year
  Sex: Male

DRUGS (3)
  1. GAMUNEX [Suspect]
     Indication: DEMYELINATING POLYNEUROPATHY
     Dosage: SEE IMAGE
     Route: 042
     Dates: start: 20050321
  2. GAMUNEX [Suspect]
  3. DILANTIN [Concomitant]

REACTIONS (2)
  - HAEMATURIA [None]
  - HAEMOGLOBIN DECREASED [None]
